FAERS Safety Report 5397128-9 (Version None)
Quarter: 2007Q3

REPORT INFORMATION
  Report Type: 
  Country: None (occurrence: None)
  Receive Date: 20070723
  Receipt Date: 20070712
  Transmission Date: 20080115
  Serious: Yes (Hospitalization)
  Sender: FDA-Public Use
  Company Number: 2007BI014777

PATIENT
  Age: 49 Year
  Sex: Female

DRUGS (2)
  1. NATALIZUMAB [Suspect]
     Indication: MULTIPLE SCLEROSIS
     Dosage: 300 MG; QM; IV
     Route: 042
  2. NATALIZUMAB [Suspect]
     Indication: MULTIPLE SCLEROSIS
     Dosage: 300 MG; QM; IV
     Route: 042
     Dates: start: 20070129

REACTIONS (7)
  - FEELING ABNORMAL [None]
  - HYPOACUSIS [None]
  - MIGRAINE [None]
  - NERVOUS SYSTEM DISORDER [None]
  - NO THERAPEUTIC RESPONSE [None]
  - NUCLEAR MAGNETIC RESONANCE IMAGING BRAIN ABNORMAL [None]
  - VISUAL ACUITY REDUCED [None]
